FAERS Safety Report 10154050 (Version 2)
Quarter: 2014Q2

REPORT INFORMATION
  Report Type: Report from Study
  Country: US (occurrence: US)
  Receive Date: 20140506
  Receipt Date: 20140506
  Transmission Date: 20141212
  Serious: Yes (Death, Hospitalization, Other)
  Sender: FDA-Public Use
  Company Number: US-AMGEN-USACT2014025643

PATIENT
  Age: 42 Year
  Sex: Male
  Weight: 119.8 kg

DRUGS (5)
  1. PANITUMUMAB [Suspect]
     Indication: COLORECTAL CANCER METASTATIC
     Dosage: 719 MG, UNK
     Route: 042
     Dates: start: 20140115, end: 20140213
  2. MEK 162 [Concomitant]
     Indication: COLORECTAL CANCER METASTATIC
     Dosage: 30 MG, UNK
     Route: 048
     Dates: start: 20140115, end: 20140220
  3. MINOCYCLINE [Concomitant]
     Dosage: UNK
  4. PREDNISONE [Concomitant]
     Dosage: UNK
  5. ADVEL [Concomitant]
     Indication: PAIN
     Dosage: 200 MG, AS NECESSARY
     Route: 065
     Dates: start: 20131207, end: 20140226

REACTIONS (4)
  - Pneumonia [Unknown]
  - Malignant neoplasm progression [Fatal]
  - Renal failure acute [Recovered/Resolved]
  - Pulmonary embolism [Unknown]
